FAERS Safety Report 18066802 (Version 3)
Quarter: 2020Q3

REPORT INFORMATION
  Report Type: Spontaneous
  Country: US (occurrence: US)
  Receive Date: 20200724
  Receipt Date: 20200806
  Transmission Date: 20201103
  Serious: No
  Sender: FDA-Public Use
  Company Number: US-PFIZER INC-2020278177

PATIENT
  Age: 64 Year
  Sex: Male

DRUGS (9)
  1. METHOTREXATE SODIUM. [Suspect]
     Active Substance: METHOTREXATE SODIUM
     Indication: HAND DERMATITIS
     Dosage: 15 MG, WEEKLY
  2. XELJANZ [Suspect]
     Active Substance: TOFACITINIB CITRATE
     Indication: HAND DERMATITIS
  3. XELJANZ [Suspect]
     Active Substance: TOFACITINIB CITRATE
     Indication: PRURITUS
  4. METHOTREXATE SODIUM. [Suspect]
     Active Substance: METHOTREXATE SODIUM
     Indication: PHOTOSENSITIVITY REACTION
  5. XELJANZ [Suspect]
     Active Substance: TOFACITINIB CITRATE
     Indication: HIDRADENITIS
  6. METHOTREXATE SODIUM. [Suspect]
     Active Substance: METHOTREXATE SODIUM
     Indication: PRURITUS
  7. METHOTREXATE SODIUM. [Suspect]
     Active Substance: METHOTREXATE SODIUM
     Indication: HIDRADENITIS
  8. XELJANZ [Suspect]
     Active Substance: TOFACITINIB CITRATE
     Indication: DERMATITIS ATOPIC
  9. XELJANZ [Suspect]
     Active Substance: TOFACITINIB CITRATE
     Indication: PHOTOSENSITIVITY REACTION
     Dosage: 5 MG, TWICE DAILY
     Route: 048

REACTIONS (3)
  - Product use in unapproved indication [Unknown]
  - Skin lesion [Unknown]
  - Off label use [Unknown]
